FAERS Safety Report 7891160-9 (Version None)
Quarter: 2011Q4

REPORT INFORMATION
  Report Type: 
  Country: None (occurrence: None)
  Receive Date: 20111103
  Receipt Date: 20110729
  Transmission Date: 20120403
  Serious: No
  Sender: FDA-Public Use
  Company Number: US-AMGEN-USASP2011038659

PATIENT
  Sex: Female

DRUGS (16)
  1. STOOL SOFTENER [Concomitant]
  2. LEVOTHYROXINE SODIUM [Concomitant]
     Dosage: 100 MUG, UNK
  3. CITRUCEL [Concomitant]
     Dosage: 500 MG, UNK
  4. PAROXETINE HCL [Concomitant]
     Dosage: 20 MG, UNK
  5. ENBREL [Suspect]
     Indication: PRODUCT USED FOR UNKNOWN INDICATION
     Dosage: 50 MG, QWK
  6. LOVASTATIN [Concomitant]
     Dosage: 10 MG, UNK
  7. VITAMIN C                          /00008001/ [Concomitant]
  8. SELENIUM [Concomitant]
     Dosage: 100 MUG, UNK
  9. OMEPRAZOLE [Concomitant]
     Dosage: 20 MG, UNK
  10. OSTEO BI-FLEX [Concomitant]
  11. LORATADINE [Concomitant]
  12. CALCIUM 600 [Concomitant]
  13. FISH OIL [Concomitant]
  14. EFFEXOR [Concomitant]
     Dosage: 150 MG, UNK
  15. MULTIVITAMIN                       /00097801/ [Concomitant]
  16. ZINC [Concomitant]

REACTIONS (3)
  - INJECTION SITE ERYTHEMA [None]
  - INJECTION SITE HAEMATOMA [None]
  - INJECTION SITE SWELLING [None]
